FAERS Safety Report 9230531 (Version 1)
Quarter: 2013Q2

REPORT INFORMATION
  Report Type: Spontaneous
  Country: BR (occurrence: BR)
  Receive Date: 20130415
  Receipt Date: 20130415
  Transmission Date: 20140414
  Serious: Yes (Other)
  Sender: FDA-Public Use
  Company Number: BR-BRISTOL-MYERS SQUIBB COMPANY-18765586

PATIENT
  Age: 73 Year
  Sex: Female
  Weight: 78 kg

DRUGS (4)
  1. APROZIDE [Suspect]
     Indication: HYPERTENSION
     Dosage: 1 DF: TAB?IN THE MORNING
     Route: 048
  2. SIMVASTATIN [Concomitant]
     Indication: PROPHYLAXIS
     Dosage: TABS
     Route: 048
  3. OMEPRAZOLE [Concomitant]
     Dosage: TABS
     Route: 048
  4. PURAN T4 [Concomitant]
     Indication: OSTEOPOROSIS
     Dosage: TABS?MORNING
     Route: 048

REACTIONS (2)
  - Breast cancer [Unknown]
  - Ankle fracture [Unknown]
